FAERS Safety Report 15715084 (Version 1)
Quarter: 2018Q4

REPORT INFORMATION
  Report Type: Report from Study
  Country: ES (occurrence: ES)
  Receive Date: 20181212
  Receipt Date: 20181212
  Transmission Date: 20190205
  Serious: Yes (Other)
  Sender: FDA-Public Use
  Company Number: ES-TEVA-2018-ES-986324

PATIENT
  Age: 61 Year
  Sex: Female

DRUGS (3)
  1. TOVIAZ 4 MG [Concomitant]
     Indication: PRODUCT USED FOR UNKNOWN INDICATION
     Route: 048
     Dates: start: 20120101
  2. COPAXONE [Suspect]
     Active Substance: GLATIRAMER ACETATE
     Indication: RELAPSING-REMITTING MULTIPLE SCLEROSIS
     Dosage: COPAXONE 40MG/ML
     Route: 058
     Dates: start: 20160101, end: 20180701
  3. ORFIDAL 1 MG [Concomitant]
     Indication: PRODUCT USED FOR UNKNOWN INDICATION
     Route: 048
     Dates: start: 20060101

REACTIONS (1)
  - Lipodystrophy acquired [Recovered/Resolved with Sequelae]

NARRATIVE: CASE EVENT DATE: 20180601
